FAERS Safety Report 5821610-0 (Version None)
Quarter: 2008Q3

REPORT INFORMATION
  Report Type: 
  Country: None (occurrence: None)
  Receive Date: 20080722
  Receipt Date: 20080708
  Transmission Date: 20090109
  Serious: Yes (Death)
  Sender: FDA-Public Use
  Company Number: 2008018182

PATIENT
  Age: 55 Year
  Sex: Male

DRUGS (3)
  1. DIPHENHYDRAMINE HCL [Suspect]
     Dosage: UNKNOWN, ORAL
     Route: 048
  2. ETHANOL (ETHANOL) [Suspect]
     Dosage: UNKNOWN, ORAL
     Route: 048
  3. PHENYLPROPANOLAMINE HCL [Suspect]
     Dosage: UNKNOWN, UNKNOWN

REACTIONS (1)
  - ACCIDENT [None]
